FAERS Safety Report 15220519 (Version 1)
Quarter: 2018Q3

REPORT INFORMATION
  Report Type: Spontaneous
  Country: PT (occurrence: PT)
  Receive Date: 20180731
  Receipt Date: 20180731
  Transmission Date: 20181010
  Serious: Yes (Hospitalization, Other)
  Sender: FDA-Public Use
  Company Number: PT-LUPIN PHARMACEUTICALS INC.-2018-05347

PATIENT
  Age: 65 Year
  Sex: Female

DRUGS (4)
  1. BIPERIDEN [Interacting]
     Active Substance: BIPERIDEN
     Indication: TREMOR
     Dosage: UNK
     Route: 065
  2. BIPERIDEN [Interacting]
     Active Substance: BIPERIDEN
     Indication: COGWHEEL RIGIDITY
  3. SERTRALINE [Suspect]
     Active Substance: SERTRALINE HYDROCHLORIDE
     Indication: DEPRESSIVE SYMPTOM
     Dosage: 100 MG, UNK
     Route: 065
  4. TRAZODONE [Interacting]
     Active Substance: TRAZODONE HYDROCHLORIDE
     Indication: INSOMNIA
     Dosage: 150 MG, PER DAY
     Route: 065

REACTIONS (2)
  - Drug interaction [Recovered/Resolved]
  - Serotonin syndrome [Recovered/Resolved]
